FAERS Safety Report 8380918-8 (Version None)
Quarter: 2012Q2

REPORT INFORMATION
  Report Type: 
  Country: None (occurrence: None)
  Receive Date: 20120523
  Receipt Date: 20120516
  Transmission Date: 20120825
  Serious: Yes (Life-Threatening)
  Sender: FDA-Public Use
  Company Number: FR-PFIZER INC-2012077703

PATIENT
  Age: 45 Year
  Sex: Female
  Weight: 60 kg

DRUGS (7)
  1. FLUDARABINE PHOSPHATE [Suspect]
     Indication: CORD BLOOD TRANSPLANT THERAPY
     Dosage: 68 MG, UNK
     Route: 042
     Dates: start: 20120105, end: 20120108
  2. CYCLOPHOSPHAMIDE [Suspect]
     Indication: CORD BLOOD TRANSPLANT THERAPY
     Dosage: 1905 MG, UNK
     Route: 042
     Dates: start: 20120105, end: 20120106
  3. THYMOGLOBULIN [Suspect]
     Indication: CORD BLOOD TRANSPLANT THERAPY
     Dosage: 476 MG, UNK
     Dates: start: 20120109, end: 20120110
  4. NEORAL [Suspect]
     Dosage: UNK
     Dates: start: 20111029, end: 20120115
  5. TARGOCID [Suspect]
     Dosage: 400 MG, 1X/DAY
     Dates: start: 20111227, end: 20120115
  6. VFEND [Suspect]
     Indication: CANDIDIASIS
     Dosage: 400 MG, 1X/DAY
     Dates: start: 20111230, end: 20120115
  7. CEFEPIME [Suspect]
     Indication: CORD BLOOD TRANSPLANT THERAPY
     Dosage: 6 G, 1X/DAY
     Dates: start: 20111230, end: 20120115

REACTIONS (4)
  - HYPOTONIA [None]
  - CONFUSIONAL STATE [None]
  - ALTERED STATE OF CONSCIOUSNESS [None]
  - DYSKINESIA [None]
